FAERS Safety Report 8464768-X (Version None)
Quarter: 2012Q2

REPORT INFORMATION
  Report Type: 
  Country: None (occurrence: None)
  Receive Date: 20120626
  Receipt Date: 20120612
  Transmission Date: 20120825
  Serious: Yes (Hospitalization)
  Sender: FDA-Public Use
  Company Number: GB-RANBAXY-2012R1-57161

PATIENT
  Age: 72 Year
  Sex: Female

DRUGS (10)
  1. OMEPRAZOLE [Concomitant]
     Dosage: UNK
  2. NAPROXEN [Suspect]
     Indication: PRODUCT USED FOR UNKNOWN INDICATION
     Dosage: INTERMITTENT USE (500 MG, BID)
     Route: 048
     Dates: start: 20111221, end: 20120520
  3. FOSTAIR [Concomitant]
     Indication: PRODUCT USED FOR UNKNOWN INDICATION
     Dosage: 100/6. 2 PUFFS TWICE A DAY (2 DF, BID)
     Route: 055
     Dates: start: 20120210
  4. SENNA-MINT WAF [Concomitant]
     Indication: PRODUCT USED FOR UNKNOWN INDICATION
     Dosage: 7.5MG-15MG ONCE A DAY AS NECESSARY (AS REQUIRED)
     Route: 048
     Dates: start: 20111221
  5. LACTULOSE [Concomitant]
     Indication: PRODUCT USED FOR UNKNOWN INDICATION
     Dosage: 10 ML, BID
     Route: 048
     Dates: start: 20111221
  6. OMEPRAZOLE [Concomitant]
     Indication: PRODUCT USED FOR UNKNOWN INDICATION
     Dosage: 40 MG, QD
     Route: 048
     Dates: start: 20120503
  7. BENDROFLUMETHIAZIDE [Concomitant]
     Indication: PRODUCT USED FOR UNKNOWN INDICATION
     Dosage: IN THE MORNING (2.5 MG, QD)
     Route: 048
     Dates: start: 20111221
  8. ALBUTEROL [Concomitant]
     Indication: PRODUCT USED FOR UNKNOWN INDICATION
     Dosage: 2 PUFFS TWICE A DAY AS NECESSARY (2 DF, BID)
     Route: 055
     Dates: start: 20120326
  9. QUININE SULFATE [Concomitant]
     Indication: PRODUCT USED FOR UNKNOWN INDICATION
     Dosage: AT NIGHT (300 MG, QD)
     Route: 048
     Dates: start: 20111221
  10. RAMIPRIL [Concomitant]
     Indication: PRODUCT USED FOR UNKNOWN INDICATION
     Dosage: 5 MG, QD
     Route: 048
     Dates: start: 20111221

REACTIONS (4)
  - HAEMOGLOBIN DECREASED [None]
  - MELAENA [None]
  - DUODENAL ULCER [None]
  - HAEMATEMESIS [None]
